FAERS Safety Report 23645546 (Version 2)
Quarter: 2024Q2

REPORT INFORMATION
  Report Type: Other
  Country: SA (occurrence: SA)
  Receive Date: 20240319
  Receipt Date: 20240403
  Transmission Date: 20240716
  Serious: Yes (Other)
  Sender: FDA-Public Use
  Company Number: SA-ALVOGEN-2024093249

PATIENT
  Age: 38 Year
  Sex: Male

DRUGS (2)
  1. METHYLPHENIDATE [Suspect]
     Active Substance: METHYLPHENIDATE
     Indication: Attention deficit hyperactivity disorder
  2. BUDESONIDE\FORMOTEROL [Concomitant]
     Active Substance: BUDESONIDE\FORMOTEROL
     Indication: Asthma

REACTIONS (4)
  - Eosinophilic pneumonia [Unknown]
  - Rash [Unknown]
  - Pruritus [Unknown]
  - Self-medication [Unknown]
